FAERS Safety Report 5238442-7 (Version None)
Quarter: 2007Q1

REPORT INFORMATION
  Report Type: 
  Country: None (occurrence: None)
  Receive Date: 20070215
  Receipt Date: 20070206
  Transmission Date: 20070707
  Serious: Yes (Life-Threatening, Other)
  Sender: FDA-Public Use
  Company Number: HQWYE020108FEB07

PATIENT
  Sex: Female
  Weight: 49 kg

DRUGS (17)
  1. MYLOTARG [Suspect]
     Indication: ACUTE MYELOID LEUKAEMIA
     Route: 041
     Dates: start: 20060927, end: 20060927
  2. PREDONINE [Concomitant]
     Indication: PROPHYLAXIS
     Route: 048
     Dates: start: 20060908
  3. TAKEPRON [Concomitant]
     Indication: PROPHYLAXIS
     Route: 048
     Dates: start: 20060721
  4. FUNGIZONE [Concomitant]
     Indication: PROPHYLAXIS
     Route: 048
     Dates: start: 20060804
  5. BAKTAR [Concomitant]
     Indication: PROPHYLAXIS
     Dosage: DOSE NOT PROVIDED, FREQUENCY REPORTED AS DAILY
     Route: 048
     Dates: start: 20060721
  6. PROVIODINE [Concomitant]
     Indication: PROPHYLAXIS
     Dosage: DOSE NOT PROVIDED, FREQUENCY REPORTED AS DAILY
     Route: 048
     Dates: start: 20060721
  7. GRAN [Concomitant]
     Route: 058
     Dates: start: 20061002, end: 20061012
  8. PENTCILLIN [Concomitant]
     Indication: PNEUMONIA
     Route: 041
     Dates: start: 20061004, end: 20061007
  9. PRODIF [Concomitant]
     Indication: PNEUMONIA
     Route: 042
     Dates: start: 20061004, end: 20061007
  10. MEROPENEM [Concomitant]
     Indication: PNEUMONIA
     Route: 041
     Dates: start: 20061008, end: 20061013
  11. AMIKACIN SULFATE [Concomitant]
     Indication: PNEUMONIA
     Route: 041
     Dates: start: 20061008, end: 20061013
  12. LACTEC [Concomitant]
     Indication: DEHYDRATION
     Route: 041
     Dates: start: 20061008, end: 20061030
  13. LASIX [Concomitant]
     Indication: CARDIAC FAILURE
     Route: 042
     Dates: start: 20061009, end: 20061010
  14. SOLU-MEDROL [Concomitant]
     Indication: PNEUMONIA
     Route: 041
     Dates: start: 20061009, end: 20061011
  15. IMMUNE GLOBULIN INTRAVENOUS (HUMAN) [Concomitant]
     Indication: PNEUMONIA
     Route: 041
     Dates: start: 20061009, end: 20061010
  16. CATABON [Concomitant]
     Indication: SHOCK
     Route: 041
     Dates: start: 20061009, end: 20061012
  17. URSO [Concomitant]
     Indication: PROPHYLAXIS
     Route: 048
     Dates: start: 20060911

REACTIONS (3)
  - DISSEMINATED INTRAVASCULAR COAGULATION [None]
  - FEBRILE NEUTROPENIA [None]
  - LIVER DISORDER [None]
